FAERS Safety Report 6179925-5 (Version None)
Quarter: 2009Q2

REPORT INFORMATION
  Report Type: 
  Country: None (occurrence: None)
  Receive Date: 20090505
  Receipt Date: 20090427
  Transmission Date: 20091009
  Serious: Yes (Other)
  Sender: FDA-Public Use
  Company Number: PHEH2008US02322

PATIENT
  Sex: Female

DRUGS (4)
  1. ZOMETA [Suspect]
     Dosage: 4MG
     Route: 042
  2. TAMOXIFEN CITRATE [Concomitant]
  3. FASLODEX [Concomitant]
     Dosage: UNK
     Dates: start: 20050101
  4. AMOXICILLIN [Concomitant]
     Dosage: 250 MG, UNK

REACTIONS (13)
  - BONE DISORDER [None]
  - CERVICAL SPINAL STENOSIS [None]
  - DEBRIDEMENT [None]
  - GENERAL PHYSICAL CONDITION ABNORMAL [None]
  - LYMPHOEDEMA [None]
  - METASTASES TO BONE [None]
  - METASTASES TO SPINE [None]
  - OEDEMA PERIPHERAL [None]
  - ORAL SURGERY [None]
  - OSTEONECROSIS [None]
  - PAIN [None]
  - PAIN IN JAW [None]
  - TOOTH EXTRACTION [None]
